FAERS Safety Report 6028285-9 (Version None)
Quarter: 2009Q1

REPORT INFORMATION
  Report Type: 
  Country: None (occurrence: None)
  Receive Date: 20090102
  Receipt Date: 20081215
  Transmission Date: 20090719
  Serious: Yes (Hospitalization, Other)
  Sender: FDA-Public Use
  Company Number: ACO_00504_2008

PATIENT
  Sex: Male

DRUGS (1)
  1. SIRDALUD/00740702/(SIRDALUD TIZANADINE HYDROCHLORIDE) [Suspect]
     Indication: MUSCLE TWITCHING
     Dosage: 6 MG QD ORAL
     Route: 048
     Dates: end: 20080601

REACTIONS (3)
  - GASTRIC CANCER [None]
  - ILL-DEFINED DISORDER [None]
  - POST PROCEDURAL COMPLICATION [None]
